FAERS Safety Report 15822699 (Version 1)
Quarter: 2019Q1

REPORT INFORMATION
  Report Type: Spontaneous
  Country: US (occurrence: US)
  Receive Date: 20190114
  Receipt Date: 20190114
  Transmission Date: 20190417
  Serious: Yes (Hospitalization)
  Sender: FDA-Public Use
  Company Number: None

PATIENT
  Age: 57 Year
  Sex: Male

DRUGS (22)
  1. MYCOPHENOLATE [Concomitant]
     Active Substance: MYCOPHENOLIC ACID
  2. WARFARIN [Concomitant]
     Active Substance: WARFARIN
  3. TORESMIDE [Concomitant]
  4. LEVOTHYROXIN [Concomitant]
     Active Substance: LEVOTHYROXINE
  5. FAMOTIDINE. [Concomitant]
     Active Substance: FAMOTIDINE
  6. DIPRIDAMOLE [Concomitant]
  7. VALACYCLOVIR [Concomitant]
     Active Substance: VALACYCLOVIR HYDROCHLORIDE
  8. TACROLIMUS. [Concomitant]
     Active Substance: TACROLIMUS
  9. NOVOLOG [Concomitant]
     Active Substance: INSULIN ASPART
  10. SILDENAFIL. [Suspect]
     Active Substance: SILDENAFIL
     Indication: CARDIAC FAILURE
     Route: 048
     Dates: start: 20170725
  11. HYDRALAZINE [Concomitant]
     Active Substance: HYDRALAZINE HYDROCHLORIDE
  12. AMIODARONE [Concomitant]
     Active Substance: AMIODARONE
  13. ALPRAZOLAM. [Concomitant]
     Active Substance: ALPRAZOLAM
  14. POT CHLORIDE [Concomitant]
     Active Substance: POTASSIUM CHLORIDE
  15. DIGOXIN. [Concomitant]
     Active Substance: DIGOXIN
  16. ALDACTONE [Concomitant]
     Active Substance: SPIRONOLACTONE
  17. TERBUTANE [Concomitant]
  18. FEUROSEMIDE [Concomitant]
  19. MICROLET [Concomitant]
  20. ALLOPURINOL. [Concomitant]
     Active Substance: ALLOPURINOL
  21. NYSTATIN. [Concomitant]
     Active Substance: NYSTATIN
  22. HYDRALAZINE [Concomitant]
     Active Substance: HYDRALAZINE HYDROCHLORIDE

REACTIONS (1)
  - Heart transplant [None]
